FAERS Safety Report 8606679-2 (Version None)
Quarter: 2012Q3

REPORT INFORMATION
  Report Type: 
  Country: None (occurrence: None)
  Receive Date: 20120820
  Receipt Date: 20120806
  Transmission Date: 20120928
  Serious: Yes (Disabling)
  Sender: FDA-Public Use
  Company Number: US-ELI_LILLY_AND_COMPANY-US201207005580

PATIENT
  Age: 74 Year
  Sex: Male

DRUGS (3)
  1. HUMULIN R [Suspect]
     Indication: DIABETES MELLITUS
  2. HUMALOG [Suspect]
     Indication: DIABETES MELLITUS
     Dosage: UNK UNK, TID
  3. HUMALOG [Suspect]
     Dosage: UNK, TID

REACTIONS (4)
  - GENERAL PHYSICAL HEALTH DETERIORATION [None]
  - BLOOD GLUCOSE ABNORMAL [None]
  - DRUG EFFECT DECREASED [None]
  - WEIGHT ABNORMAL [None]
